FAERS Safety Report 19656762 (Version 1)
Quarter: 2021Q3

REPORT INFORMATION
  Report Type: Spontaneous
  Country: US (occurrence: US)
  Receive Date: 20210803
  Receipt Date: 20210803
  Transmission Date: 20211014
  Serious: Yes (Hospitalization)
  Sender: FDA-Public Use
  Company Number: None

PATIENT
  Age: 62 Year
  Sex: Male

DRUGS (1)
  1. OPSUMIT [Suspect]
     Active Substance: MACITENTAN
     Indication: PULMONARY ARTERIAL HYPERTENSION
     Route: 048
     Dates: start: 20170713

REACTIONS (4)
  - Right ventricular failure [None]
  - Coronary artery disease [None]
  - Heart and lung transplant [None]
  - Cardiac failure [None]

NARRATIVE: CASE EVENT DATE: 20210713
